FAERS Safety Report 6313142-0 (Version None)
Quarter: 2009Q3

REPORT INFORMATION
  Report Type: 
  Country: None (occurrence: None)
  Receive Date: 20090818
  Receipt Date: 20090807
  Transmission Date: 20100115
  Serious: Yes (Life-Threatening, Hospitalization)
  Sender: FDA-Public Use
  Company Number: ES-NOVOPROD-290325

PATIENT
  Age: 72 Year
  Sex: Male

DRUGS (2)
  1. NOVONORM [Suspect]
     Indication: DIABETES MELLITUS
     Route: 048
     Dates: start: 20070701, end: 20090719
  2. METFORMIN [Concomitant]
     Indication: DIABETES MELLITUS
     Route: 048
     Dates: start: 20070701, end: 20090719

REACTIONS (2)
  - HYPOGLYCAEMIA [None]
  - LACTIC ACIDOSIS [None]
